FAERS Safety Report 15813068 (Version 2)
Quarter: 2019Q2

REPORT INFORMATION
  Report Type: Report from Study
  Country: DE (occurrence: DE)
  Receive Date: 20190111
  Receipt Date: 20190411
  Transmission Date: 20190711
  Serious: Yes (Hospitalization, Other)
  Sender: FDA-Public Use
  Company Number: DE-BAYER-2017-130977

PATIENT
  Age: 53 Year
  Sex: Female

DRUGS (5)
  1. ACETYLSALICYLIC ACID [Concomitant]
     Active Substance: ASPIRIN
  2. BETAFERON [Suspect]
     Active Substance: INTERFERON BETA-1B
     Indication: MULTIPLE SCLEROSIS
     Dosage: 250 ?G, QOD
     Route: 058
     Dates: start: 20070515
  3. VALSARTAN. [Concomitant]
     Active Substance: VALSARTAN
  4. OLMETEC [Concomitant]
     Active Substance: OLMESARTAN MEDOXOMIL
  5. BISOPROLOL [Concomitant]
     Active Substance: BISOPROLOL

REACTIONS (6)
  - Muscle spasms [Unknown]
  - Nausea [Recovered/Resolved]
  - Optic nerve disorder [Recovered/Resolved]
  - Migraine [Recovered/Resolved]
  - Injection site reaction [Not Recovered/Not Resolved]
  - Myocardial infarction [Recovered/Resolved]

NARRATIVE: CASE EVENT DATE: 20170201
